FAERS Safety Report 11849095 (Version 1)
Quarter: 2015Q4

REPORT INFORMATION
  Report Type: Spontaneous
  Country: CA (occurrence: CA)
  Receive Date: 20151218
  Receipt Date: 20151218
  Transmission Date: 20160305
  Serious: Yes (Other)
  Sender: FDA-Public Use
  Company Number: CA-TEVA-619070ACC

PATIENT
  Age: 82 Year
  Sex: Female
  Weight: 66.28 kg

DRUGS (13)
  1. MELOXICAM. [Suspect]
     Active Substance: MELOXICAM
     Indication: ARTHRITIS
     Dosage: 15 MILLIGRAM DAILY;
     Route: 048
  2. PRADAX [Suspect]
     Active Substance: DABIGATRAN ETEXILATE MESYLATE
     Indication: ATRIAL FIBRILLATION
     Dosage: 220 MILLIGRAM DAILY;
     Route: 048
  3. SERTRALINE [Concomitant]
     Active Substance: SERTRALINE HYDROCHLORIDE
  4. TYLENOL NO.1 CAPLETS [Concomitant]
     Active Substance: ACETAMINOPHEN
  5. MELOXICAM. [Suspect]
     Active Substance: MELOXICAM
     Indication: PAIN
  6. AMLODIPINE [Concomitant]
     Active Substance: AMLODIPINE BESYLATE
  7. APO-ESOMEPRAZOLE [Concomitant]
     Active Substance: ESOMEPRAZOLE
  8. APO-ROSUVASTATIN [Concomitant]
     Active Substance: ROSUVASTATIN
  9. FLOVENT [Concomitant]
     Active Substance: FLUTICASONE PROPIONATE
  10. SANDOZ VALSARTAN [Concomitant]
     Active Substance: VALSARTAN
  11. TEVA-LEVOFLOXACIN [Concomitant]
     Active Substance: LEVOFLOXACIN
  12. TYLENOL WITH CODEINE [Concomitant]
     Active Substance: ACETAMINOPHEN\CODEINE PHOSPHATE
  13. ZOPICLONE [Concomitant]
     Active Substance: ZOPICLONE

REACTIONS (6)
  - Abasia [Not Recovered/Not Resolved]
  - Pneumonia [Not Recovered/Not Resolved]
  - Bedridden [Not Recovered/Not Resolved]
  - Fatigue [Not Recovered/Not Resolved]
  - Haemoglobin decreased [Not Recovered/Not Resolved]
  - Haemoptysis [Not Recovered/Not Resolved]
